FAERS Safety Report 4531603-1 (Version None)
Quarter: 2004Q4

REPORT INFORMATION
  Report Type: 
  Country: None (occurrence: None)
  Receive Date: 20041217
  Receipt Date: 20041217
  Transmission Date: 20050328
  Serious: No
  Sender: FDA-Public Use
  Company Number: None

PATIENT
  Sex: Male
  Weight: 68.0396 kg

DRUGS (6)
  1. SELEGINE  5MG  APOTEX [Suspect]
     Indication: PARKINSON'S DISEASE
     Dosage: 5 MG  TWICE DAILY ORAL
     Route: 048
     Dates: start: 20041129, end: 20041214
  2. LISINOPRIL [Concomitant]
  3. FLOMAX [Concomitant]
  4. PROPOXYPHENE-M/APAP [Concomitant]
  5. CHLORPROPAMINE [Concomitant]
  6. HYDROCHLOROTHIAZIDE [Concomitant]

REACTIONS (4)
  - DRUG EFFECT DECREASED [None]
  - DRUG LEVEL BELOW THERAPEUTIC [None]
  - PHARMACEUTICAL PRODUCT COMPLAINT [None]
  - TREMOR [None]
